FAERS Safety Report 5265286-2 (Version None)
Quarter: 2007Q1

REPORT INFORMATION
  Report Type: 
  Country: None (occurrence: None)
  Receive Date: 20061213
  Receipt Date: 20030613
  Transmission Date: 20070707
  Serious: Yes (Hospitalization)
  Sender: FDA-Public Use
  Company Number: 2003UW07575

PATIENT
  Age: 30 Year
  Sex: Female
  Weight: 57.1532 kg

DRUGS (3)
  1. IRESSA [Suspect]
     Indication: NON-SMALL CELL LUNG CANCER
     Dates: start: 20030501
  2. PRILOSEC [Concomitant]
  3. ANTI-ANXIETY AND PAIN MEDICATIONS [Concomitant]

REACTIONS (2)
  - ANOREXIA [None]
  - NAUSEA [None]
